FAERS Safety Report 21361469 (Version 1)
Quarter: 2022Q3

REPORT INFORMATION
  Report Type: Spontaneous
  Country: US (occurrence: US)
  Receive Date: 20220921
  Receipt Date: 20220921
  Transmission Date: 20221027
  Serious: Yes (Other)
  Sender: FDA-Public Use
  Company Number: US-GILEAD-2022-0598208

PATIENT
  Sex: Male

DRUGS (16)
  1. SOFOSBUVIR\VELPATASVIR [Suspect]
     Active Substance: SOFOSBUVIR\VELPATASVIR
     Indication: Chronic hepatitis C
     Dosage: 1 DOSAGE FORM, QD
     Route: 048
  2. AMLODIPINE BESYLATE\BENAZEPRIL HYDROCHLORIDE [Concomitant]
     Active Substance: AMLODIPINE BESYLATE\BENAZEPRIL HYDROCHLORIDE
  3. METFORMIN HYDROCHLORIDE [Concomitant]
     Active Substance: METFORMIN HYDROCHLORIDE
  4. VITAMINS [Concomitant]
     Active Substance: VITAMINS
  5. NOVOLOG [Concomitant]
     Active Substance: INSULIN ASPART
  6. ASPIRIN [Concomitant]
     Active Substance: ASPIRIN
  7. MIRTAZAPINE [Concomitant]
     Active Substance: MIRTAZAPINE
  8. ALDACTONE [Concomitant]
     Active Substance: SPIRONOLACTONE
  9. ALDOMET [Concomitant]
     Active Substance: METHYLDOPA
  10. PEPCID [Concomitant]
     Active Substance: FAMOTIDINE
  11. LASIX [Concomitant]
     Active Substance: FUROSEMIDE
  12. SUBOXONE [Concomitant]
     Active Substance: BUPRENORPHINE HYDROCHLORIDE\NALOXONE HYDROCHLORIDE
  13. SEROQUEL [Concomitant]
     Active Substance: QUETIAPINE FUMARATE
  14. PLAVIX [Concomitant]
     Active Substance: CLOPIDOGREL BISULFATE
  15. FOLIC ACID [Concomitant]
     Active Substance: FOLIC ACID
  16. COVARYX [Concomitant]
     Active Substance: ESTROGENS, ESTERIFIED\METHYLTESTOSTERONE

REACTIONS (6)
  - Diabetes mellitus [Not Recovered/Not Resolved]
  - Blood creatinine increased [Recovering/Resolving]
  - Hepatic enzyme increased [Recovering/Resolving]
  - Fluid retention [Recovered/Resolved]
  - Renal disorder [Not Recovered/Not Resolved]
  - Blood test abnormal [Recovering/Resolving]
